FAERS Safety Report 8130344-1 (Version None)
Quarter: 2012Q1

REPORT INFORMATION
  Report Type: 
  Country: None (occurrence: None)
  Receive Date: 20120210
  Receipt Date: 20120206
  Transmission Date: 20120608
  Serious: Yes (Other)
  Sender: FDA-Public Use
  Company Number: PHEH2012US003242

PATIENT
  Sex: Female

DRUGS (3)
  1. TRILEPTAL [Suspect]
     Indication: HEADACHE
     Dosage: 200 MG, UNK
  2. TRILEPTAL [Suspect]
     Dosage: 300 MG, UNK
  3. VALTURNA [Concomitant]

REACTIONS (4)
  - TRIGEMINAL NEURALGIA [None]
  - BLOOD TEST ABNORMAL [None]
  - BLOOD SODIUM DECREASED [None]
  - RASH [None]
